FAERS Safety Report 26004528 (Version 1)
Quarter: 2025Q4

REPORT INFORMATION
  Report Type: Report from Study
  Country: EU (occurrence: EU)
  Receive Date: 20251106
  Receipt Date: 20251106
  Transmission Date: 20260117
  Serious: Yes (Death, Life-Threatening)
  Sender: ABBVIE
  Company Number: EU-ABBVIE-6531751

PATIENT
  Age: 70 Year
  Sex: Male

DRUGS (29)
  1. VENETOCLAX [Suspect]
     Active Substance: VENETOCLAX
     Indication: Acute myeloid leukaemia
     Dosage: CYCLE 1, RAMP- UP DOSE
     Route: 048
     Dates: start: 20240515, end: 20240515
  2. VENETOCLAX [Suspect]
     Active Substance: VENETOCLAX
     Indication: Acute myeloid leukaemia
     Dosage: CYCLE 1, RAMP- UP DOSE
     Route: 048
     Dates: start: 20240516, end: 20240516
  3. VENETOCLAX [Suspect]
     Active Substance: VENETOCLAX
     Indication: Acute myeloid leukaemia
     Dosage: CYCLE 1
     Route: 048
     Dates: start: 20240517, end: 20240616
  4. VENETOCLAX [Suspect]
     Active Substance: VENETOCLAX
     Indication: Acute myeloid leukaemia
     Dosage: CYCLE 2
     Route: 048
     Dates: start: 20240616, end: 20240714
  5. VENETOCLAX [Suspect]
     Active Substance: VENETOCLAX
     Indication: Acute myeloid leukaemia
     Dosage: CYCLE 3
     Route: 048
     Dates: start: 20240801, end: 20240916
  6. VENETOCLAX [Suspect]
     Active Substance: VENETOCLAX
     Indication: Acute myeloid leukaemia
     Dosage: CYCLE 4
     Route: 048
     Dates: start: 20241007, end: 20241031
  7. VENETOCLAX [Suspect]
     Active Substance: VENETOCLAX
     Indication: Acute myeloid leukaemia
     Dosage: CYCLE 4, DAILY DOSE: 0 MG
     Route: 048
     Dates: start: 20241101, end: 20241103
  8. VENETOCLAX [Suspect]
     Active Substance: VENETOCLAX
     Indication: Acute myeloid leukaemia
     Dosage: CYCLE 5
     Route: 048
     Dates: start: 20241111, end: 20241121
  9. VENETOCLAX [Suspect]
     Active Substance: VENETOCLAX
     Indication: Acute myeloid leukaemia
     Dosage: CYCLE 5, DAILY DOSE: 0 MG
     Route: 048
     Dates: start: 20241122, end: 20241208
  10. VENETOCLAX [Suspect]
     Active Substance: VENETOCLAX
     Indication: Acute myeloid leukaemia
     Dosage: CYCLE 6
     Route: 048
     Dates: start: 20241216, end: 20250211
  11. PERINDOPRIL [Concomitant]
     Active Substance: PERINDOPRIL
     Indication: Myocardial ischaemia
     Route: 048
     Dates: start: 2010
  12. BISOPROLOL [Concomitant]
     Active Substance: BISOPROLOL
     Indication: Myocardial ischaemia
     Route: 054
     Dates: start: 2010
  13. FILGRASTIM [Concomitant]
     Active Substance: FILGRASTIM
     Indication: Neutropenia
     Dates: start: 20240715, end: 20240721
  14. FILGRASTIM [Concomitant]
     Active Substance: FILGRASTIM
     Indication: Neutropenia
     Dates: start: 20241031, end: 20241104
  15. AZACITIDINE [Suspect]
     Active Substance: AZACITIDINE
     Indication: Acute myeloid leukaemia
     Dosage: CYCLE 1, DAILY DOSE: 75 MG/M2 BSA
     Route: 065
     Dates: start: 20240515, end: 20240521
  16. AZACITIDINE [Suspect]
     Active Substance: AZACITIDINE
     Indication: Acute myeloid leukaemia
     Dosage: CYCLE 2, DAILY DOSE: 75 MG/M2 BSA
     Route: 065
     Dates: start: 20240617, end: 20240625
  17. AZACITIDINE [Suspect]
     Active Substance: AZACITIDINE
     Indication: Acute myeloid leukaemia
     Dosage: CYCLE 3, DAILY DOSE: 75 MG/M2 BSA
     Route: 065
     Dates: start: 20240801, end: 20240809
  18. AZACITIDINE [Suspect]
     Active Substance: AZACITIDINE
     Indication: Acute myeloid leukaemia
     Dosage: CYCLE 4, DAILY DOSE: 75 MG/M2 BSA
     Route: 065
     Dates: start: 20241007, end: 20241015
  19. AZACITIDINE [Suspect]
     Active Substance: AZACITIDINE
     Indication: Acute myeloid leukaemia
     Dosage: CYCLE 5, DAILY DOSE: 75 MG/M2 BSA
     Route: 065
     Dates: start: 20241111, end: 20241112
  20. AZACITIDINE [Suspect]
     Active Substance: AZACITIDINE
     Indication: Acute myeloid leukaemia
     Dosage: CYCLE 5
     Route: 065
     Dates: start: 20241113, end: 20241119
  21. AZACITIDINE [Suspect]
     Active Substance: AZACITIDINE
     Indication: Acute myeloid leukaemia
     Dosage: CYCLE 6, DAILY DOSE:148 MG/M2 BSA
     Route: 065
     Dates: start: 20241216, end: 20241224
  22. Lacidipina [Concomitant]
     Indication: Myocardial ischaemia
     Route: 048
     Dates: start: 2010
  23. RANOLAZINE [Concomitant]
     Active Substance: RANOLAZINE
     Indication: Myocardial ischaemia
     Route: 048
     Dates: start: 2010
  24. ROSUVASTATIN [Concomitant]
     Active Substance: ROSUVASTATIN
     Indication: Myocardial ischaemia
     Route: 048
  25. ALLOPURINOL [Concomitant]
     Active Substance: ALLOPURINOL
     Indication: Tumour lysis syndrome
     Route: 048
     Dates: start: 202405, end: 202406
  26. ISAVUCONAZONIUM [Concomitant]
     Active Substance: ISAVUCONAZONIUM
     Indication: Antifungal prophylaxis
     Route: 048
     Dates: start: 202405
  27. MEROPENEM [Concomitant]
     Active Substance: MEROPENEM
     Indication: Pneumonia serratia
     Dosage: TIME INTERVAL: 0.33333333 DAYS
     Route: 042
     Dates: start: 20240513, end: 20240527
  28. LINEZOLID [Concomitant]
     Active Substance: LINEZOLID
     Indication: Pneumonia serratia
     Route: 042
     Dates: start: 20240513, end: 20240523
  29. AMPHOTERICIN B [Concomitant]
     Active Substance: AMPHOTERICIN B
     Indication: Pneumonia serratia
     Route: 042
     Dates: start: 20240513, end: 20240523

REACTIONS (1)
  - Death [Fatal]

NARRATIVE: CASE EVENT DATE: 20250624
